FAERS Safety Report 6013542-2 (Version None)
Quarter: 2008Q4

REPORT INFORMATION
  Report Type: 
  Country: None (occurrence: None)
  Receive Date: 20081219
  Receipt Date: 20081217
  Transmission Date: 20090506
  Serious: Yes (Death, Hospitalization, Other)
  Sender: FDA-Public Use
  Company Number: PHEH2006US03538

PATIENT

DRUGS (12)
  1. ZOMETA [Suspect]
     Indication: PROSTATE CANCER
     Dosage: 4 MG, QMO
     Route: 042
     Dates: start: 20041111, end: 20050701
  2. ZOMETA [Suspect]
     Indication: METASTASES TO BONE
  3. PREDNISONE TAB [Concomitant]
     Dosage: UNK, UNK
  4. LUPRON [Suspect]
     Dosage: UNK, EVERY 3 MONTHS
  5. TAXOTERE [Concomitant]
     Dosage: 118 MG, UNK
  6. KETOCONAZOLE [Concomitant]
  7. AVELOX [Concomitant]
     Dosage: 400 MG, UNK
  8. FOSAMAX [Concomitant]
     Dosage: 70 MG, QW
     Route: 048
     Dates: start: 20030101
  9. HYDROCHLOROTHIAZIDE [Concomitant]
  10. UROCIT-K [Concomitant]
  11. CASODEX [Concomitant]
     Dosage: 50 MG
     Dates: start: 20030101
  12. ANANDRON [Concomitant]
     Dosage: 50 MG
     Dates: start: 20040101

REACTIONS (36)
  - ABSCESS NECK [None]
  - ANAEMIA [None]
  - BACK PAIN [None]
  - BACTERIA TISSUE SPECIMEN IDENTIFIED [None]
  - BLADDER ADENOCARCINOMA STAGE UNSPECIFIED [None]
  - BONE DISORDER [None]
  - BONE PAIN [None]
  - CELLULITIS [None]
  - DYSPNOEA [None]
  - EXCESSIVE GRANULATION TISSUE [None]
  - HAEMOGLOBIN DECREASED [None]
  - HEPATIC ISCHAEMIA [None]
  - HEPATOMEGALY [None]
  - INFLAMMATION [None]
  - JAUNDICE [None]
  - JAW DISORDER [None]
  - LUMBAR SPINAL STENOSIS [None]
  - METASTASES TO BONE [None]
  - METASTASES TO LIVER [None]
  - METASTASES TO SPINE [None]
  - MYOSITIS [None]
  - ORAL DISORDER [None]
  - ORAL SURGERY [None]
  - OSTEONECROSIS [None]
  - PAIN [None]
  - PAIN IN EXTREMITY [None]
  - PAIN IN JAW [None]
  - PANCYTOPENIA [None]
  - PNEUMONIA [None]
  - PRIMARY SEQUESTRUM [None]
  - PROSTATE CANCER METASTATIC [None]
  - SINUS TACHYCARDIA [None]
  - SOFT TISSUE DISORDER [None]
  - SPINAL CORD COMPRESSION [None]
  - THROMBOCYTOPENIA [None]
  - VENOOCCLUSIVE LIVER DISEASE [None]
